FAERS Safety Report 7018058-2 (Version None)
Quarter: 2010Q3

REPORT INFORMATION
  Report Type: 
  Country: None (occurrence: None)
  Receive Date: 20100928
  Receipt Date: 20100921
  Transmission Date: 20110219
  Serious: Yes (Hospitalization)
  Sender: FDA-Public Use
  Company Number: PHHY2010ES62438

PATIENT
  Age: 67 Year
  Sex: Female

DRUGS (2)
  1. VOLTAREN [Suspect]
     Indication: ARTHRITIS
     Dosage: 50 MG, BID
     Route: 048
     Dates: start: 20100802, end: 20100805
  2. VOLTAREN [Suspect]
     Dosage: UNKNOWN
     Route: 048
     Dates: start: 20100806, end: 20100809

REACTIONS (2)
  - AGRANULOCYTOSIS [None]
  - FEBRILE NEUTROPENIA [None]
